FAERS Safety Report 8958094 (Version 1)
Quarter: 2012Q4

REPORT INFORMATION
  Report Type: 
  Country: US (occurrence: US)
  Receive Date: 20121211
  Receipt Date: 20121211
  Transmission Date: 20130627
  Serious: Yes (Other)
  Sender: FDA-Public Use
  Company Number: PHHY2012US000566

PATIENT
  Age: 53 Year
  Sex: Female

DRUGS (2)
  1. CO-TRIMOXAZOLE [Suspect]
     Indication: ARTHRITIS BACTERIAL
     Dosage: UNK
  2. VANCOMYCIN [Concomitant]
     Route: 042

REACTIONS (11)
  - Dermatitis exfoliative [Recovered/Resolved]
  - Candidiasis [Unknown]
  - Back pain [Unknown]
  - Pruritus [Recovered/Resolved]
  - Generalised erythema [Recovered/Resolved]
  - Eosinophilia [Recovered/Resolved]
  - Rash erythematous [Recovered/Resolved]
  - Rash pruritic [Recovered/Resolved]
  - Skin exfoliation [Recovered/Resolved]
  - Pyrexia [Unknown]
  - Vaginal infection [Unknown]
